FAERS Safety Report 10160510 (Version 2)
Quarter: 2014Q2

REPORT INFORMATION
  Report Type: Report from Study
  Country: ES (occurrence: ES)
  Receive Date: 20140508
  Receipt Date: 20140508
  Transmission Date: 20141212
  Serious: Yes (Disabling)
  Sender: FDA-Public Use
  Company Number: ES-CELGENEUS-144-10004-12071887

PATIENT
  Age: 27 Year
  Sex: Male
  Weight: 93.5 kg

DRUGS (3)
  1. CC-10004 [Suspect]
     Indication: PSORIASIS
     Dosage: 60 MILLIGRAM
     Route: 048
     Dates: start: 20110407, end: 20120716
  2. IBUPROFEN [Concomitant]
     Indication: PYREXIA
     Dosage: 1800 MILLIGRAM
     Route: 048
     Dates: start: 20120704, end: 20120721
  3. IBUPROFEN [Concomitant]
     Indication: MALAISE

REACTIONS (1)
  - Infectious mononucleosis [Recovered/Resolved]
